FAERS Safety Report 9601978 (Version 2)
Quarter: 2014Q1

REPORT INFORMATION
  Report Type: Report from Study
  Country: JP (occurrence: JP)
  Receive Date: 20131007
  Receipt Date: 20140127
  Transmission Date: 20141002
  Serious: Yes (Hospitalization, Other)
  Sender: FDA-Public Use
  Company Number: PHHY2013JP111434

PATIENT
  Age: 58 Year
  Sex: Male

DRUGS (21)
  1. LEPONEX / CLOZARIL [Suspect]
     Indication: SCHIZOPHRENIA
     Dosage: UNK
     Route: 048
     Dates: start: 20130703, end: 20130704
  2. LEPONEX / CLOZARIL [Suspect]
     Dosage: 25 MG, UNK
     Route: 048
     Dates: start: 20130705, end: 20130709
  3. LEPONEX / CLOZARIL [Suspect]
     Dosage: 50 MG, UNK
     Route: 048
     Dates: start: 20130710, end: 20130713
  4. LEPONEX / CLOZARIL [Suspect]
     Dosage: 75 MG, UNK
     Route: 048
     Dates: start: 20130714, end: 20130716
  5. LEPONEX / CLOZARIL [Suspect]
     Dosage: 100 MG, UNK
     Route: 048
     Dates: start: 20130717, end: 20130720
  6. LEPONEX / CLOZARIL [Suspect]
     Dosage: 125 MG, UNK
     Route: 048
     Dates: start: 20130721, end: 20130723
  7. LEPONEX / CLOZARIL [Suspect]
     Dosage: 150 MG, UNK
     Route: 048
     Dates: start: 20130727, end: 20130730
  8. LEPONEX / CLOZARIL [Suspect]
     Dosage: 175 MG, UNK
     Route: 048
     Dates: start: 20130731, end: 20130806
  9. LEPONEX / CLOZARIL [Suspect]
     Dosage: 200 MG, UNK
     Route: 048
     Dates: start: 20130807, end: 20130827
  10. LEPONEX / CLOZARIL [Suspect]
     Dosage: 250 MG, UNK
     Route: 048
     Dates: start: 20130828, end: 20130903
  11. LEPONEX / CLOZARIL [Suspect]
     Dosage: 300 MG, UNK
     Route: 048
     Dates: start: 20130904, end: 20130910
  12. LEPONEX / CLOZARIL [Suspect]
     Dosage: 350 MG, UNK
     Route: 048
     Dates: start: 20130911, end: 20130930
  13. ZYPREXA [Concomitant]
     Dosage: 10 MG, UNK
     Route: 048
     Dates: start: 20130710
  14. ZYPREXA [Concomitant]
     Dosage: 5 MG, UNK
     Route: 048
     Dates: start: 20130710
  15. QUETIAPINE [Concomitant]
     Dosage: 600 MG, UNK
     Route: 048
     Dates: start: 20130720
  16. QUETIAPINE [Concomitant]
     Dosage: 400 MG, UNK
     Route: 048
  17. QUETIAPINE [Concomitant]
     Dosage: 200 MG, UNK
     Route: 048
  18. QUETIAPINE [Concomitant]
     Dosage: 100 MG, UNK
     Route: 048
  19. FLUNITRAZEPAM [Concomitant]
     Indication: SCHIZOPHRENIA, UNDIFFERENTIATED TYPE
     Dosage: 2 MG, UNK
  20. ROZEREM [Concomitant]
     Indication: SCHIZOPHRENIA, UNDIFFERENTIATED TYPE
     Dosage: 8 MG, UNK
     Route: 048
  21. UBRETID [Concomitant]
     Indication: SCHIZOPHRENIA, UNDIFFERENTIATED TYPE
     Dosage: 5 MG, UNK
     Route: 048

REACTIONS (3)
  - Large intestine perforation [Not Recovered/Not Resolved]
  - Haematochezia [Unknown]
  - Body temperature decreased [Not Recovered/Not Resolved]
